FAERS Safety Report 8358115-1 (Version None)
Quarter: 2012Q2

REPORT INFORMATION
  Report Type: 
  Country: None (occurrence: None)
  Receive Date: 20120514
  Receipt Date: 20120504
  Transmission Date: 20120825
  Serious: Yes (Hospitalization)
  Sender: FDA-Public Use
  Company Number: US-GLAXOSMITHKLINE-A0843304A

PATIENT
  Age: 69 Year
  Sex: Male

DRUGS (7)
  1. MICRONASE [Concomitant]
  2. LOPRESSOR [Concomitant]
  3. AVANDIA [Suspect]
     Indication: DIABETES MELLITUS
     Dosage: 4MG PER DAY
     Route: 048
     Dates: start: 20020502, end: 20030529
  4. ZESTRIL [Concomitant]
  5. ZOCOR [Concomitant]
  6. ALLOPURINOL [Concomitant]
  7. GLUCOPHAGE [Concomitant]

REACTIONS (6)
  - MYOCARDIAL INFARCTION [None]
  - CARDIAC ARREST [None]
  - CARDIAC FAILURE CONGESTIVE [None]
  - ISCHAEMIC CARDIOMYOPATHY [None]
  - VENTRICULAR FIBRILLATION [None]
  - CORONARY ARTERY DISEASE [None]
